FAERS Safety Report 8552013-6 (Version None)
Quarter: 2012Q3

REPORT INFORMATION
  Report Type: 
  Country: None (occurrence: None)
  Receive Date: 20120730
  Receipt Date: 20120727
  Transmission Date: 20120928
  Serious: Yes (Other)
  Sender: FDA-Public Use
  Company Number: DE-AMGEN-DEUSP2012026662

PATIENT
  Age: 78 Year
  Sex: Male
  Weight: 91 kg

DRUGS (4)
  1. PROLIA [Suspect]
     Dosage: UNK
     Dates: start: 20110418
  2. COAPROVEL 150/12.5 [Concomitant]
  3. PROLIA [Suspect]
     Dosage: UNK
     Dates: start: 20111010
  4. PROLIA [Suspect]
     Indication: OSTEOPOROSIS
     Dosage: 60 UNK, UNK
     Route: 058
     Dates: start: 20101102

REACTIONS (3)
  - THROMBOSIS [None]
  - THROMBOPHLEBITIS [None]
  - ERYSIPELAS [None]
